FAERS Safety Report 8484543 (Version 2)
Quarter: 2013Q2

REPORT INFORMATION
  Report Type: Spontaneous
  Country: FR (occurrence: FR)
  Receive Date: 20120330
  Receipt Date: 20130412
  Transmission Date: 20140414
  Serious: Yes (Other)
  Sender: FDA-Public Use
  Company Number: FR-PFIZER INC-2012075297

PATIENT
  Age: 51 Year
  Sex: Female

DRUGS (2)
  1. SALAZOPYRINE [Suspect]
     Dosage: 500 MG FILM COATED GASTRO-RESISTANT TABLETS
     Route: 048
     Dates: start: 20110706, end: 20110826
  2. EFFERALGAN CODEINE [Concomitant]
     Dosage: UNK
     Route: 048
     Dates: start: 20110706

REACTIONS (2)
  - Paraesthesia [Recovered/Resolved]
  - Motor dysfunction [Recovered/Resolved]
